FAERS Safety Report 17044737 (Version 1)
Quarter: 2019Q4

REPORT INFORMATION
  Report Type: Spontaneous
  Country: CA (occurrence: CA)
  Receive Date: 20191118
  Receipt Date: 20191118
  Transmission Date: 20200122
  Serious: Yes (Death, Other)
  Sender: FDA-Public Use
  Company Number: CA-CELGENEUS-CAN-20191105324

PATIENT
  Age: 67 Year
  Sex: Male
  Weight: 58.11 kg

DRUGS (3)
  1. AZACITIDINE. [Suspect]
     Active Substance: AZACITIDINE
     Indication: ACUTE MYELOID LEUKAEMIA
     Route: 065
     Dates: start: 201610
  2. INSULIN [Concomitant]
     Active Substance: INSULIN NOS
     Indication: DIABETES MELLITUS
     Route: 065
     Dates: end: 201910
  3. AZACITIDINE. [Suspect]
     Active Substance: AZACITIDINE
     Dosage: .75 MILLIGRAM
     Route: 065
     Dates: end: 201910

REACTIONS (5)
  - Liver disorder [Unknown]
  - Diabetes mellitus [Unknown]
  - Hepatic failure [Fatal]
  - Hepatic cirrhosis [Not Recovered/Not Resolved]
  - Cholelithiasis [Unknown]

NARRATIVE: CASE EVENT DATE: 201611
